FAERS Safety Report 4521738-1 (Version None)
Quarter: 2004Q4

REPORT INFORMATION
  Report Type: 
  Country: None (occurrence: None)
  Receive Date: 20041209
  Receipt Date: 20041127
  Transmission Date: 20050328
  Serious: Yes (Hospitalization)
  Sender: FDA-Public Use
  Company Number: IT-BRISTOL-MYERS SQUIBB COMPANY-12776969

PATIENT
  Age: 61 Year
  Sex: Male

DRUGS (2)
  1. COUMADIN [Suspect]
     Indication: DEEP VEIN THROMBOSIS
     Route: 048
     Dates: start: 20041119, end: 20041124
  2. SELEPARINA [Concomitant]
     Dates: start: 20041022, end: 20041113

REACTIONS (2)
  - PANCYTOPENIA [None]
  - SKIN NECROSIS [None]
